FAERS Safety Report 6615550-7 (Version None)
Quarter: 2010Q1

REPORT INFORMATION
  Report Type: 
  Country: None (occurrence: None)
  Receive Date: 20100305
  Receipt Date: 20100225
  Transmission Date: 20100710
  Serious: Yes (Hospitalization)
  Sender: FDA-Public Use
  Company Number: JP-BAYER-201010543BYL

PATIENT
  Age: 63 Year
  Sex: Male
  Weight: 53 kg

DRUGS (17)
  1. SORAFENIB [Suspect]
     Indication: NON-SMALL CELL LUNG CANCER RECURRENT
     Dosage: UNIT DOSE: 200 MG
     Route: 048
     Dates: start: 20091118, end: 20091130
  2. SORAFENIB [Suspect]
     Dosage: UNIT DOSE: 200 MG
     Route: 048
     Dates: start: 20091202, end: 20100127
  3. OXINORM [Concomitant]
     Indication: CANCER PAIN
     Route: 048
     Dates: start: 20090709
  4. LOXONIN [Concomitant]
     Indication: CANCER PAIN
     Route: 048
     Dates: start: 20091029
  5. SELBEX [Concomitant]
     Indication: GASTRITIS PROPHYLAXIS
     Route: 048
     Dates: start: 20081127, end: 20091025
  6. DUROTEP [Concomitant]
     Indication: CANCER PAIN
     Route: 062
     Dates: start: 20090703
  7. CODEINE SULFATE [Concomitant]
     Indication: COUGH
     Route: 048
     Dates: start: 20100205
  8. CODEINE SULFATE [Concomitant]
     Route: 048
     Dates: start: 20090324, end: 20100204
  9. LENDORMIN D [Concomitant]
     Indication: INSOMNIA
     Route: 048
     Dates: start: 20081224
  10. MAGMITT [Concomitant]
     Indication: CONSTIPATION
     Dosage: 250MG, 750MG
     Route: 048
     Dates: start: 20090324
  11. NERISONA [Concomitant]
     Indication: RASH
     Route: 062
     Dates: start: 20091127, end: 20091224
  12. ISODINE GARGLE [Concomitant]
     Indication: INFECTION PROPHYLAXIS
     Route: 002
     Dates: start: 20091130, end: 20091203
  13. GASTER D [Concomitant]
     Indication: ABDOMINAL DISCOMFORT
     Route: 048
     Dates: start: 20091014
  14. AMLODIPINE [Concomitant]
     Indication: HYPERTENSION
     Route: 048
     Dates: start: 20091016, end: 20100123
  15. DERMOVATE [Concomitant]
     Indication: PALMAR-PLANTAR ERYTHRODYSAESTHESIA SYNDROME
     Route: 062
     Dates: start: 20090112, end: 20091016
  16. NAUZELIN [Concomitant]
     Indication: ABDOMINAL DISCOMFORT
     Dosage: TOTAL DAILY DOSE: 10 MG
     Route: 048
     Dates: start: 20091204
  17. LASIX [Concomitant]
     Indication: PLEURAL EFFUSION
     Route: 048
     Dates: start: 20091012

REACTIONS (2)
  - PERICARDIAL EFFUSION [None]
  - PLEURAL EFFUSION [None]
